FAERS Safety Report 15560148 (Version 1)
Quarter: 2018Q4

REPORT INFORMATION
  Report Type: Spontaneous
  Country: US (occurrence: US)
  Receive Date: 20181023
  Receipt Date: 20181023
  Transmission Date: 20190205
  Serious: Yes (Life-Threatening, Hospitalization, Disabling)
  Sender: FDA-Public Use
  Company Number: None

PATIENT
  Age: 29 Year
  Sex: Male
  Weight: 63.5 kg

DRUGS (2)
  1. RISPERDAL [Suspect]
     Active Substance: RISPERIDONE
     Dosage: ?          QUANTITY:20.5 MG MILLIGRAM(S);?
     Route: 048
     Dates: start: 2012
  2. INVEGA SUSTENNA [Suspect]
     Active Substance: PALIPERIDONE PALMITATE
     Indication: SCHIZOPHRENIA
     Dosage: ?          QUANTITY:20.5 MG MILLIGRAM(S);?
     Route: 058
     Dates: start: 20120907, end: 2012

REACTIONS (13)
  - Sperm concentration zero [None]
  - Respiratory disorder [None]
  - Torticollis [None]
  - Bedridden [None]
  - Tardive dyskinesia [None]
  - Drug hypersensitivity [None]
  - Akathisia [None]
  - Dysphonia [None]
  - Feeling abnormal [None]
  - Restlessness [None]
  - Discomfort [None]
  - Constipation [None]
  - Depression [None]

NARRATIVE: CASE EVENT DATE: 20160907
